FAERS Safety Report 4400086-4 (Version None)
Quarter: 2004Q3

REPORT INFORMATION
  Report Type: 
  Country: None (occurrence: None)
  Receive Date: 20040716
  Receipt Date: 20040702
  Transmission Date: 20050211
  Serious: Yes (Other)
  Sender: FDA-Public Use
  Company Number: 2004044315

PATIENT
  Age: 62 Year
  Sex: Male

DRUGS (1)
  1. ALOSTIL 2% (MINOXIDIL) [Suspect]
     Indication: ALOPECIA
     Dosage: TOPICAL
     Route: 061

REACTIONS (2)
  - BASAL CELL CARCINOMA [None]
  - NEOPLASM SKIN [None]
